FAERS Safety Report 11029684 (Version 1)
Quarter: 2015Q2

REPORT INFORMATION
  Report Type: Spontaneous
  Country: US (occurrence: US)
  Receive Date: 20150415
  Receipt Date: 20150415
  Transmission Date: 20150821
  Serious: Yes (Other)
  Sender: FDA-Public Use
  Company Number: US-SUN PHARMACEUTICAL INDUSTRIES LTD-2015US-95283

PATIENT
  Age: 61 Year
  Sex: Male

DRUGS (3)
  1. TEMOZOLOMIDE. [Interacting]
     Active Substance: TEMOZOLOMIDE
     Indication: METASTATIC CARCINOID TUMOUR
     Dosage: UNK
     Route: 048
  2. DOXORUBIN-ELUTING BEADS [Suspect]
     Active Substance: DOXORUBICIN
     Indication: METASTATIC CARCINOID TUMOUR
     Dosage: UNK
     Route: 065
  3. CAPECITABINE. [Suspect]
     Active Substance: CAPECITABINE
     Indication: METASTATIC CARCINOID TUMOUR
     Dosage: UNK
     Route: 048

REACTIONS (5)
  - Erythema [Recovered/Resolved]
  - Recall phenomenon [Unknown]
  - Pruritus [Recovered/Resolved]
  - Flushing [None]
  - Drug interaction [Unknown]
